FAERS Safety Report 18543551 (Version 1)
Quarter: 2020Q4

REPORT INFORMATION
  Report Type: Spontaneous
  Country: US (occurrence: US)
  Receive Date: 20201124
  Receipt Date: 20201124
  Transmission Date: 20210114
  Serious: Yes (Death, Other)
  Sender: FDA-Public Use
  Company Number: US-GILEAD-2020-0505659

PATIENT
  Age: 95 Year
  Sex: Male
  Weight: 84.1 kg

DRUGS (11)
  1. ASCORBIC ACID. [Concomitant]
     Active Substance: ASCORBIC ACID
     Dosage: 1000 MG, BID
     Route: 048
     Dates: start: 20201024, end: 20201028
  2. AZITHROMYCIN ANHYDROUS. [Concomitant]
     Active Substance: AZITHROMYCIN ANHYDROUS
     Dosage: 500 MG, QD
     Route: 048
     Dates: start: 20201023, end: 20201028
  3. CEFTRIAXONE. [Concomitant]
     Active Substance: CEFTRIAXONE
     Dosage: 1 G, QD
     Route: 042
     Dates: start: 20201023, end: 20201028
  4. CLINIMIX [AMINO ACIDS NOS;ELECTROLYTES NOS;GLUCOSE] [Concomitant]
     Dosage: 27.5 G, Q20H
     Dates: start: 20201104, end: 20201111
  5. ZINC SULFATE. [Concomitant]
     Active Substance: ZINC SULFATE
     Dosage: 220 MG, BID
     Route: 048
     Dates: start: 20201024, end: 20201109
  6. REMDESIVIR. [Suspect]
     Active Substance: REMDESIVIR
     Indication: COVID-19
     Dosage: 100 MG, QD
     Route: 042
     Dates: start: 20201029, end: 20201102
  7. PANTOPRAZOLE [Concomitant]
     Active Substance: PANTOPRAZOLE
     Dosage: 40 MG, QD
     Route: 048
     Dates: start: 20201024, end: 20201111
  8. CEFEPIME [Concomitant]
     Active Substance: CEFEPIME HYDROCHLORIDE
     Dosage: 1 G, Q6H
     Route: 042
     Dates: start: 20201110, end: 20201111
  9. DEXAMETHASONE. [Concomitant]
     Active Substance: DEXAMETHASONE
     Dosage: 6 MG
     Route: 042
     Dates: start: 20201023, end: 20201102
  10. DOXYCYCLINE. [Concomitant]
     Active Substance: DOXYCYCLINE
     Dosage: 100 MG, BID
     Route: 042
     Dates: start: 20201030, end: 20201101
  11. AZTREONAM. [Concomitant]
     Active Substance: AZTREONAM
     Dosage: 1 G, Q8H
     Route: 042
     Dates: start: 20201101, end: 20201108

REACTIONS (4)
  - Death [Fatal]
  - Respiratory disorder [Not Recovered/Not Resolved]
  - General physical health deterioration [Not Recovered/Not Resolved]
  - Oxygen consumption decreased [Not Recovered/Not Resolved]

NARRATIVE: CASE EVENT DATE: 20201111
